FAERS Safety Report 12171068 (Version 1)
Quarter: 2016Q1

REPORT INFORMATION
  Report Type: Report from Study
  Country: CO (occurrence: CO)
  Receive Date: 20160311
  Receipt Date: 20160311
  Transmission Date: 20160526
  Serious: Yes (Hospitalization, Other)
  Sender: FDA-Public Use
  Company Number: PHHY2016CO031903

PATIENT
  Sex: Male
  Weight: 48 kg

DRUGS (1)
  1. AFINITOR [Suspect]
     Active Substance: EVEROLIMUS
     Indication: RENAL CELL CARCINOMA
     Dosage: 10 MG, QD
     Route: 048
     Dates: start: 20160208

REACTIONS (6)
  - Asphyxia [Unknown]
  - Feeling of despair [Unknown]
  - Fear [Unknown]
  - Feeling abnormal [Unknown]
  - Hallucination [Unknown]
  - Thrombosis [Unknown]
